FAERS Safety Report 10732875 (Version 3)
Quarter: 2015Q2

REPORT INFORMATION
  Report Type: Spontaneous
  Country: EC (occurrence: EC)
  Receive Date: 20150123
  Receipt Date: 20150515
  Transmission Date: 20150821
  Serious: Yes (Other)
  Sender: FDA-Public Use
  Company Number: EC-PFIZER INC-2015029512

PATIENT
  Age: 59 Year
  Sex: Female

DRUGS (2)
  1. LYRICA [Suspect]
     Active Substance: PREGABALIN
     Indication: BACK PAIN
     Dosage: 150 MG, 1X/DAY
     Dates: start: 201501
  2. LYRICA [Suspect]
     Active Substance: PREGABALIN
     Dosage: 150 MG, 1X/DAY

REACTIONS (3)
  - Renal injury [Not Recovered/Not Resolved]
  - Headache [Unknown]
  - Uterine cancer [Recovered/Resolved]

NARRATIVE: CASE EVENT DATE: 2015
